FAERS Safety Report 21890644 (Version 3)
Quarter: 2023Q2

REPORT INFORMATION
  Report Type: Report from Study
  Country: US (occurrence: US)
  Receive Date: 20230120
  Receipt Date: 20230619
  Transmission Date: 20230721
  Serious: Yes (Hospitalization, Other)
  Sender: FDA-Public Use
  Company Number: US-ABBVIE-4276140

PATIENT
  Sex: Female

DRUGS (2)
  1. HUMIRA [Suspect]
     Active Substance: ADALIMUMAB
     Indication: Psoriasis
     Route: 058
     Dates: start: 20190110
  2. HUMIRA [Suspect]
     Active Substance: ADALIMUMAB
     Route: 058
     Dates: start: 2023

REACTIONS (6)
  - Sepsis [Recovered/Resolved]
  - Meningitis viral [Unknown]
  - Encephalitis [Recovering/Resolving]
  - Aortic aneurysm [Unknown]
  - Pneumonia [Unknown]
  - Transient ischaemic attack [Unknown]
